FAERS Safety Report 5063481-9 (Version None)
Quarter: 2006Q3

REPORT INFORMATION
  Report Type: 
  Country: None (occurrence: None)
  Receive Date: 20060727
  Receipt Date: 20060721
  Transmission Date: 20061208
  Serious: Yes (Other)
  Sender: FDA-Public Use
  Company Number: ES-GLAXOSMITHKLINE-B0432220A

PATIENT
  Sex: Female

DRUGS (3)
  1. AUGMENTIN '125' [Suspect]
     Indication: EAR INFECTION
     Route: 048
     Dates: start: 20060719
  2. IBUPROFEN [Suspect]
     Indication: EAR INFECTION
     Route: 048
     Dates: start: 20060719
  3. NOLOTIL [Suspect]
     Indication: EAR INFECTION
     Route: 048
     Dates: start: 20060719

REACTIONS (4)
  - DIARRHOEA [None]
  - DIZZINESS [None]
  - HAEMATEMESIS [None]
  - NAUSEA [None]
